FAERS Safety Report 9490688 (Version 1)
Quarter: 2013Q3

REPORT INFORMATION
  Report Type: Spontaneous
  Country: US (occurrence: None)
  Receive Date: 20130828
  Receipt Date: 20130828
  Transmission Date: 20140515
  Serious: Yes (Life-Threatening)
  Sender: FDA-Public Use
  Company Number: None

PATIENT
  Age: 65 Year
  Sex: Female
  Weight: 59.5 kg

DRUGS (10)
  1. PAZOPANIB [Suspect]
     Indication: ANGIOSARCOMA
     Dosage: 800 MG DAILY PO
     Route: 048
     Dates: start: 20130724, end: 20130822
  2. AUGMENTIN [Concomitant]
  3. COMPAZINE [Concomitant]
  4. METOPROLOL [Concomitant]
  5. OXYCODONE [Concomitant]
  6. SYNTHROID [Concomitant]
  7. TRAMADOL [Concomitant]
  8. WELLBUTRIN [Concomitant]
  9. ZOFRAN [Concomitant]
  10. IMMODIUM [Concomitant]

REACTIONS (6)
  - Vomiting [None]
  - Abdominal pain [None]
  - Alanine aminotransferase increased [None]
  - Aspartate aminotransferase increased [None]
  - Blood alkaline phosphatase increased [None]
  - Blood bilirubin increased [None]
